FAERS Safety Report 24392999 (Version 1)
Quarter: 2024Q4

REPORT INFORMATION
  Report Type: Spontaneous
  Country: US (occurrence: None)
  Receive Date: 20241003
  Receipt Date: 20241003
  Transmission Date: 20250114
  Serious: Yes (Hospitalization)
  Sender: Public
  Company Number: None

PATIENT
  Sex: Male
  Weight: 75.3 kg

DRUGS (3)
  1. FLUOROURACIL [Suspect]
     Active Substance: FLUOROURACIL
  2. CAMPTOSAR [Suspect]
     Active Substance: IRINOTECAN HYDROCHLORIDE
  3. ELOXATIN [Concomitant]
     Active Substance: OXALIPLATIN

REACTIONS (4)
  - Dyschezia [None]
  - Proctalgia [None]
  - Rectal haemorrhage [None]
  - Anal fissure [None]

NARRATIVE: CASE EVENT DATE: 20240923
